FAERS Safety Report 8067543 (Version 8)
Quarter: 2013Q1

REPORT INFORMATION
  Report Type: Spontaneous
  Country: US (occurrence: US)
  Receive Date: 20110803
  Receipt Date: 20130325
  Transmission Date: 20140127
  Serious: Yes (Other)
  Sender: FDA-Public Use
  Company Number: US-ASTRAZENECA-2011SE44108

PATIENT
  Age: 72 Year
  Sex: Male
  Weight: 94.8 kg

DRUGS (25)
  1. SEROQUEL XR [Suspect]
     Indication: SCHIZOPHRENIA
     Route: 048
  2. SEROQUEL XR [Suspect]
     Indication: BIPOLAR DISORDER
     Route: 048
  3. SEROQUEL XR [Suspect]
     Indication: DEMENTIA ALZHEIMER^S TYPE
     Route: 048
  4. SEROQUEL XR [Suspect]
     Indication: DEMENTIA
     Route: 048
  5. SEROQUEL XR [Suspect]
     Indication: SCHIZOPHRENIA
     Route: 048
  6. SEROQUEL XR [Suspect]
     Indication: BIPOLAR DISORDER
     Route: 048
  7. SEROQUEL XR [Suspect]
     Indication: DEMENTIA ALZHEIMER^S TYPE
     Route: 048
  8. SEROQUEL XR [Suspect]
     Indication: DEMENTIA
     Route: 048
  9. SEROQUEL XR [Suspect]
     Indication: SCHIZOPHRENIA
     Route: 048
     Dates: start: 2000
  10. SEROQUEL XR [Suspect]
     Indication: BIPOLAR DISORDER
     Route: 048
     Dates: start: 2000
  11. SEROQUEL XR [Suspect]
     Indication: DEMENTIA ALZHEIMER^S TYPE
     Route: 048
     Dates: start: 2000
  12. SEROQUEL XR [Suspect]
     Indication: DEMENTIA
     Route: 048
     Dates: start: 2000
  13. SEROQUEL XR [Suspect]
     Indication: SCHIZOPHRENIA
     Route: 048
  14. SEROQUEL XR [Suspect]
     Indication: BIPOLAR DISORDER
     Route: 048
  15. SEROQUEL XR [Suspect]
     Indication: DEMENTIA ALZHEIMER^S TYPE
     Route: 048
  16. SEROQUEL XR [Suspect]
     Indication: DEMENTIA
     Route: 048
  17. LISINOPRIL [Concomitant]
     Indication: HYPERTENSION
     Route: 048
  18. CRESTOR [Concomitant]
     Indication: BLOOD CHOLESTEROL ABNORMAL
     Route: 048
  19. NAMENDA [Concomitant]
  20. EXELON [Concomitant]
  21. ASPIRIN [Concomitant]
  22. LORAZEPAM [Concomitant]
     Indication: ANXIETY
     Dosage: 1-2 DF EVERY 6-8 HOURS AS NEEDED.
  23. LORAZEPAM [Concomitant]
     Indication: AGITATION
     Dosage: 1-2 DF EVERY 6-8 HOURS AS NEEDED.
  24. ZEGRID OTC [Concomitant]
     Indication: GASTROOESOPHAGEAL REFLUX DISEASE
  25. TRAZEDONE [Concomitant]
     Indication: INSOMNIA
     Dosage: HALF - ONE TABLET AT BED TIME

REACTIONS (10)
  - Aortic aneurysm [Unknown]
  - Aggression [Unknown]
  - Prostate cancer [Unknown]
  - Bipolar disorder [Unknown]
  - Insomnia [Unknown]
  - Agitation [Unknown]
  - Abnormal behaviour [Unknown]
  - Schizophrenia [Unknown]
  - Body height decreased [Unknown]
  - Drug dose omission [Unknown]
